FAERS Safety Report 6892922-7 (Version None)
Quarter: 2010Q3

REPORT INFORMATION
  Report Type: 
  Country: None (occurrence: None)
  Receive Date: 20100731
  Receipt Date: 20081118
  Transmission Date: 20110219
  Serious: No
  Sender: FDA-Public Use
  Company Number: US-PFIZER INC-2008089720

PATIENT
  Age: 88 Year
  Sex: Male
  Weight: 68.04 kg

DRUGS (2)
  1. NEURONTIN [Suspect]
     Indication: SPINAL COLUMN STENOSIS
     Dates: start: 20050101, end: 20080101
  2. ALL OTHER THERAPEUTIC PRODUCTS [Concomitant]

REACTIONS (1)
  - DYSGEUSIA [None]
